FAERS Safety Report 16965758 (Version 1)
Quarter: 2019Q4

REPORT INFORMATION
  Report Type: Spontaneous
  Country: MX (occurrence: MX)
  Receive Date: 20191028
  Receipt Date: 20191028
  Transmission Date: 20200122
  Serious: Yes (Hospitalization)
  Sender: FDA-Public Use
  Company Number: MX-AMNEAL PHARMACEUTICALS-2019-AMRX-02404

PATIENT
  Age: 54 Year
  Sex: Female

DRUGS (3)
  1. DICLOXACILLIN [Concomitant]
     Active Substance: DICLOXACILLIN
     Indication: TOOTH ABSCESS
     Dosage: UNK UNK, EVERY 8HR
     Route: 065
  2. ACYCLOVIR. [Suspect]
     Active Substance: ACYCLOVIR
     Indication: TOOTH ABSCESS
     Dosage: 400 MILLIGRAM, EVERY 8HR
     Route: 048
  3. CLINDAMYCIN. [Concomitant]
     Active Substance: CLINDAMYCIN
     Indication: TOOTH ABSCESS
     Dosage: UNK UNK, EVERY 8HR
     Route: 065

REACTIONS (3)
  - Hypokalaemia [Recovered/Resolved]
  - Paraparesis [Recovered/Resolved]
  - Acute kidney injury [Recovered/Resolved]
